FAERS Safety Report 4268582-0 (Version None)
Quarter: 2004Q1

REPORT INFORMATION
  Report Type: 
  Country: None (occurrence: None)
  Receive Date: 20040108
  Receipt Date: 20040105
  Transmission Date: 20041129
  Serious: Yes (Death)
  Sender: FDA-Public Use
  Company Number: TPG2003A00219

PATIENT
  Age: 59 Year
  Sex: Male

DRUGS (3)
  1. ACTOS [Suspect]
     Indication: DIABETES MELLITUS NON-INSULIN-DEPENDENT
     Dosage: 1 IN 1 D PER ORAL
     Route: 048
     Dates: start: 20020924, end: 20021004
  2. METFORMIN HCL [Concomitant]
  3. OMEPRAZOLE [Concomitant]

REACTIONS (5)
  - BRAIN HYPOXIA [None]
  - CARDIAC ARREST [None]
  - CEREBRAL DISORDER [None]
  - HYPOXIA [None]
  - MYOCARDIAL INFARCTION [None]
